FAERS Safety Report 7086380-X (Version None)
Quarter: 2010Q4

REPORT INFORMATION
  Report Type: 
  Country: None (occurrence: None)
  Receive Date: 20101105
  Receipt Date: 20101027
  Transmission Date: 20110411
  Serious: Yes (Death, Hospitalization)
  Sender: FDA-Public Use
  Company Number: NO-TEVA-253121ISR

PATIENT
  Age: 58 Year
  Sex: Female

DRUGS (7)
  1. CITALOPRAM HYDROBROMIDE [Suspect]
  2. AMITRIPTYLINE HCL [Interacting]
  3. SIMVASTATIN [Concomitant]
  4. ACETYLSALICYLIC ACID [Concomitant]
  5. METFORMIN HCL [Concomitant]
  6. BENDROFLUMETHIAZIDE [Concomitant]
  7. INSULIN                            /00646001/ [Concomitant]

REACTIONS (4)
  - DISSEMINATED INTRAVASCULAR COAGULATION [None]
  - DRUG INTERACTION [None]
  - MULTI-ORGAN FAILURE [None]
  - SEROTONIN SYNDROME [None]
